FAERS Safety Report 21895701 (Version 1)
Quarter: 2023Q1

REPORT INFORMATION
  Report Type: Report from Study
  Country: AU (occurrence: AU)
  Receive Date: 20230123
  Receipt Date: 20230123
  Transmission Date: 20230417
  Serious: Yes (Hospitalization, Other)
  Sender: FDA-Public Use
  Company Number: AU-ABBVIE-4277671

PATIENT
  Sex: Male

DRUGS (1)
  1. LEUPROLIDE ACETATE [Suspect]
     Active Substance: LEUPROLIDE ACETATE
     Indication: Prostate cancer
     Route: 030
     Dates: start: 201902

REACTIONS (5)
  - Nephrolithiasis [Unknown]
  - Weight increased [Unknown]
  - Metastases to pelvis [Unknown]
  - Metastases to bone [Unknown]
  - Metastasis [Unknown]
